FAERS Safety Report 20026864 (Version 2)
Quarter: 2021Q4

REPORT INFORMATION
  Report Type: Spontaneous
  Country: US (occurrence: US)
  Receive Date: 20211103
  Receipt Date: 20211130
  Transmission Date: 20220303
  Serious: No
  Sender: FDA-Public Use
  Company Number: US-AMGEN-USASP2021170471

PATIENT
  Sex: Female

DRUGS (10)
  1. OTEZLA [Suspect]
     Active Substance: APREMILAST
     Indication: Psoriasis
     Dosage: 30 MILLIGRAM, BID
     Route: 048
     Dates: start: 20210318
  2. ASPIRIN [Concomitant]
     Active Substance: ASPIRIN
  3. CYPROHEPTADINE HYDROCHLORIDE [Concomitant]
     Active Substance: CYPROHEPTADINE HYDROCHLORIDE
  4. FAMCICLOVIR [Concomitant]
     Active Substance: FAMCICLOVIR
  5. MYRBETRIQ [Concomitant]
     Active Substance: MIRABEGRON
  6. DOCONEXENT\ICOSAPENT [Concomitant]
     Active Substance: DOCONEXENT\ICOSAPENT
  7. PREGABALIN [Concomitant]
     Active Substance: PREGABALIN
  8. SIMPONI ARIA [Concomitant]
     Active Substance: GOLIMUMAB
  9. ZETIA [Concomitant]
     Active Substance: EZETIMIBE
  10. SINGULAIR [Concomitant]
     Active Substance: MONTELUKAST SODIUM

REACTIONS (2)
  - Psoriasis [Not Recovered/Not Resolved]
  - Product dose omission issue [Not Recovered/Not Resolved]

NARRATIVE: CASE EVENT DATE: 20210101
